FAERS Safety Report 11269623 (Version 1)
Quarter: 2015Q3

REPORT INFORMATION
  Report Type: Spontaneous
  Country: ES (occurrence: ES)
  Receive Date: 20150714
  Receipt Date: 20150714
  Transmission Date: 20151125
  Serious: Yes (Other)
  Sender: FDA-Public Use
  Company Number: ES-WATSON-2015-14561

PATIENT
  Age: 80 Year
  Sex: Female

DRUGS (1)
  1. RAMIPRIL ACTAVIS [Suspect]
     Active Substance: RAMIPRIL
     Indication: CARDIAC FAILURE CONGESTIVE
     Dosage: 2.5 MG, DAILY
     Route: 048
     Dates: start: 20150523, end: 20150529

REACTIONS (4)
  - Localised oedema [Recovering/Resolving]
  - Oedema peripheral [Not Recovered/Not Resolved]
  - Periorbital oedema [Recovering/Resolving]
  - Rash pruritic [Not Recovered/Not Resolved]

NARRATIVE: CASE EVENT DATE: 20150527
